FAERS Safety Report 9153084 (Version 1)
Quarter: 2013Q1

REPORT INFORMATION
  Report Type: Spontaneous
  Country: SG (occurrence: SG)
  Receive Date: 20130311
  Receipt Date: 20130311
  Transmission Date: 20140127
  Serious: Yes (Hospitalization)
  Sender: FDA-Public Use
  Company Number: SG-009507513-1303SGP003349

PATIENT
  Sex: 0

DRUGS (1)
  1. DECA-DURABOLIN [Suspect]

REACTIONS (1)
  - Intraspinal abscess [Unknown]
